FAERS Safety Report 11626890 (Version 5)
Quarter: 2016Q1

REPORT INFORMATION
  Report Type: Report from Study
  Country: US (occurrence: US)
  Receive Date: 20151013
  Receipt Date: 20160104
  Transmission Date: 20160525
  Serious: Yes (Hospitalization)
  Sender: FDA-Public Use
  Company Number: US-ACTELION-A-NJ2015-125297

PATIENT
  Age: 52 Year
  Sex: Female

DRUGS (4)
  1. PROPOFOL. [Suspect]
     Active Substance: PROPOFOL
     Indication: PRODUCT USED FOR UNKNOWN INDICATION
     Route: 065
  2. MACITENTAN [Suspect]
     Active Substance: MACITENTAN
     Indication: PULMONARY HYPERTENSION
     Dosage: 10 MG, QD
     Route: 048
     Dates: start: 20150130
  3. REVATIO [Concomitant]
     Active Substance: SILDENAFIL CITRATE
  4. REMODULIN [Concomitant]
     Active Substance: TREPROSTINIL

REACTIONS (10)
  - Heart rate increased [Unknown]
  - Drug hypersensitivity [Unknown]
  - Pain [Unknown]
  - Catheter site infection [Unknown]
  - Sepsis [Unknown]
  - Mechanical ventilation [Unknown]
  - Nausea [Unknown]
  - Vomiting [Unknown]
  - Hypotension [Unknown]
  - Influenza like illness [Unknown]
